FAERS Safety Report 10237113 (Version 1)
Quarter: 2014Q1

REPORT INFORMATION
  Report Type: Spontaneous
  Country: US (occurrence: None)
  Receive Date: 20140306
  Receipt Date: 20140306
  Transmission Date: 20141002
  Serious: Yes (Other)
  Sender: FDA-Public Use
  Company Number: 163-21880-13010223

PATIENT
  Age: 71 Year
  Sex: Female
  Weight: 54.89 kg

DRUGS (2)
  1. REVLIMID [Suspect]
     Indication: PLASMA CELL MYELOMA
     Dosage: 21 IN 21 D
     Route: 048
     Dates: start: 20121206
  2. CYTOXAN (CYCLOPHOSPHAMIDE) [Concomitant]

REACTIONS (8)
  - Toxicity to various agents [None]
  - Insomnia [None]
  - Upper respiratory tract infection [None]
  - Nasopharyngitis [None]
  - Platelet count decreased [None]
  - Nausea [None]
  - Fatigue [None]
  - Dizziness [None]
